FAERS Safety Report 25033049 (Version 1)
Quarter: 2025Q1

REPORT INFORMATION
  Report Type: Spontaneous
  Country: GR (occurrence: GR)
  Receive Date: 20250303
  Receipt Date: 20250303
  Transmission Date: 20250409
  Serious: Yes (Other)
  Sender: MYLAN
  Company Number: GR-BoehringerIngelheim-2025-BI-008649

PATIENT
  Age: 52 Year
  Sex: Male

DRUGS (4)
  1. DABIGATRAN [Suspect]
     Active Substance: DABIGATRAN
     Indication: Atrial fibrillation
  2. DABIGATRAN [Suspect]
     Active Substance: DABIGATRAN
     Route: 065
  3. DABIGATRAN [Suspect]
     Active Substance: DABIGATRAN
     Route: 065
  4. DABIGATRAN [Suspect]
     Active Substance: DABIGATRAN

REACTIONS (2)
  - Atrial thrombosis [Unknown]
  - Drug ineffective [Unknown]
